FAERS Safety Report 9853070 (Version 1)
Quarter: 2014Q1

REPORT INFORMATION
  Report Type: Spontaneous
  Country: US (occurrence: None)
  Receive Date: 20140128
  Receipt Date: 20140128
  Transmission Date: 20141002
  Serious: No
  Sender: FDA-Public Use
  Company Number: None

PATIENT
  Sex: Female

DRUGS (6)
  1. ARMIDEX, 1 MG, ASTRAZENECA [Suspect]
     Route: 048
  2. ASA [Concomitant]
  3. TOPROL XL [Concomitant]
  4. COD+VIT D [Concomitant]
  5. MULTIVITAMIN [Concomitant]
  6. TIROLOL [Concomitant]

REACTIONS (1)
  - Back pain [None]
